FAERS Safety Report 14945871 (Version 1)
Quarter: 2018Q2

REPORT INFORMATION
  Report Type: Spontaneous
  Country: US (occurrence: US)
  Receive Date: 20180508
  Receipt Date: 20180508
  Transmission Date: 20180711
  Serious: Yes (Death)
  Sender: FDA-Public Use
  Company Number: None

PATIENT
  Sex: Female

DRUGS (2)
  1. PROCRIT [Suspect]
     Active Substance: ERYTHROPOIETIN
     Indication: CARDIAC DISORDER
     Dosage: OTHER FREQUENCY:EVERY TWO WEEKS;?
     Route: 058
     Dates: start: 201802
  2. PROCRIT [Suspect]
     Active Substance: ERYTHROPOIETIN
     Indication: HYPERTENSION
     Dosage: OTHER FREQUENCY:EVERY TWO WEEKS;?
     Route: 058
     Dates: start: 201802

REACTIONS (1)
  - Death [None]
